FAERS Safety Report 6422021-X (Version None)
Quarter: 2009Q4

REPORT INFORMATION
  Report Type: 
  Country: None (occurrence: None)
  Receive Date: 20091029
  Receipt Date: 20091029
  Transmission Date: 20100525
  Serious: Yes (Other)
  Sender: FDA-Public Use
  Company Number: None

PATIENT
  Age: 60 Year
  Sex: Female

DRUGS (2)
  1. MITOXANTRONE [Suspect]
     Indication: MULTIPLE SCLEROSIS
     Dosage: 12 MG/M2 Q 3 MONTHS IV 4/11/07 - FIRST DOSE 1/19/09 - EIGHTH (LAST) DOSE
     Route: 042
     Dates: start: 20070411
  2. MITOXANTRONE [Suspect]
     Indication: MULTIPLE SCLEROSIS
     Dosage: 12 MG/M2 Q 3 MONTHS IV 4/11/07 - FIRST DOSE 1/19/09 - EIGHTH (LAST) DOSE
     Route: 042
     Dates: start: 20090119

REACTIONS (1)
  - ACUTE PROMYELOCYTIC LEUKAEMIA [None]
